FAERS Safety Report 25312836 (Version 4)
Quarter: 2025Q3

REPORT INFORMATION
  Report Type: Spontaneous
  Country: PE (occurrence: PE)
  Receive Date: 20250514
  Receipt Date: 20250710
  Transmission Date: 20251020
  Serious: Yes (Other)
  Sender: PFIZER
  Company Number: PE-PFIZER INC-PV202500056584

PATIENT
  Age: 75 Year
  Sex: Female

DRUGS (1)
  1. IBRANCE [Suspect]
     Active Substance: PALBOCICLIB
     Route: 048
     Dates: start: 202406

REACTIONS (6)
  - Second primary malignancy [Unknown]
  - Skin cancer [Unknown]
  - Lymphoma [Unknown]
  - Recurrent cancer [Unknown]
  - Immune system disorder [Not Recovered/Not Resolved]
  - Depressed mood [Unknown]
